FAERS Safety Report 20961548 (Version 1)
Quarter: 2022Q2

REPORT INFORMATION
  Report Type: Spontaneous
  Country: US (occurrence: None)
  Receive Date: 20220614
  Receipt Date: 20220614
  Transmission Date: 20220721
  Serious: No
  Sender: FDA-Public Use
  Company Number: None

PATIENT
  Sex: Female

DRUGS (1)
  1. OPSUMIT [Suspect]
     Active Substance: MACITENTAN
     Indication: Pulmonary arterial hypertension
     Dosage: 10 MG DAILY BY MOUTH
     Route: 048
     Dates: start: 201912

REACTIONS (7)
  - Liver disorder [None]
  - Yellow skin [None]
  - Ocular icterus [None]
  - Platelet count decreased [None]
  - Vascular pain [None]
  - Vein discolouration [None]
  - Gingival bleeding [None]
